FAERS Safety Report 5526943-3 (Version None)
Quarter: 2007Q4

REPORT INFORMATION
  Report Type: 
  Country: None (occurrence: None)
  Receive Date: 20071127
  Receipt Date: 20071115
  Transmission Date: 20080405
  Serious: Yes (Other)
  Sender: FDA-Public Use
  Company Number: FR-PFIZER INC-2007097015

PATIENT
  Sex: Female
  Weight: 42 kg

DRUGS (3)
  1. RELPAX [Suspect]
     Indication: MIGRAINE
  2. TRINORDIOL [Concomitant]
  3. ALL OTHER THERAPEUTIC PRODUCTS [Concomitant]

REACTIONS (5)
  - CHEST DISCOMFORT [None]
  - HEADACHE [None]
  - HEMIPARESIS [None]
  - MYALGIA [None]
  - THROAT TIGHTNESS [None]
